FAERS Safety Report 4525401-2 (Version None)
Quarter: 2004Q4

REPORT INFORMATION
  Report Type: 
  Country: None (occurrence: None)
  Receive Date: 20041108
  Receipt Date: 20040106
  Transmission Date: 20050328
  Serious: Yes (Hospitalization)
  Sender: FDA-Public Use
  Company Number: US-JNJFOC-20040608254

PATIENT
  Age: 26 Year
  Sex: Female
  Weight: 63.5036 kg

DRUGS (5)
  1. TYLENOL [Suspect]
     Indication: SUICIDE ATTEMPT
     Dosage: ORAL
     Route: 048
     Dates: start: 20030707
  2. INFLIXIMAB (INFLIXIMAB) [Concomitant]
  3. AZATHIOPRINE [Concomitant]
  4. MESALAMINE [Concomitant]
  5. UNSPECIFIED ANTIDEPRESSANTS (ANTIDEPRESSANTS) [Concomitant]

REACTIONS (1)
  - INTENTIONAL OVERDOSE [None]
